FAERS Safety Report 17706804 (Version 3)
Quarter: 2020Q3

REPORT INFORMATION
  Report Type: Spontaneous
  Country: US (occurrence: US)
  Receive Date: 20200424
  Receipt Date: 20200807
  Transmission Date: 20201102
  Serious: Yes (Hospitalization, Other)
  Sender: FDA-Public Use
  Company Number: US-PURDUE PHARMA-USA-2020-0151957

PATIENT
  Age: 57 Year
  Sex: Male

DRUGS (3)
  1. OXYCONTIN [Suspect]
     Active Substance: OXYCODONE HYDROCHLORIDE
     Indication: DIABETIC NEUROPATHY
     Dosage: (5MG) 1 TABLET, DAILY
     Route: 048
     Dates: start: 201912, end: 202001
  2. LYRICA [Concomitant]
     Active Substance: PREGABALIN
     Indication: DIABETIC NEUROPATHY
     Dosage: UNK
     Route: 048
  3. APIXABAN [Concomitant]
     Active Substance: APIXABAN
     Indication: CARDIOVASCULAR EVENT PROPHYLAXIS
     Dosage: UNK
     Route: 048

REACTIONS (5)
  - Constipation [Unknown]
  - Drug abuse [Recovered/Resolved]
  - Gastric perforation [Unknown]
  - Vomiting projectile [Unknown]
  - Muscle spasms [Unknown]

NARRATIVE: CASE EVENT DATE: 201912
